FAERS Safety Report 18194004 (Version 1)
Quarter: 2020Q3

REPORT INFORMATION
  Report Type: Spontaneous
  Country: US (occurrence: US)
  Receive Date: 20200825
  Receipt Date: 20200825
  Transmission Date: 20201103
  Serious: Yes (Hospitalization)
  Sender: FDA-Public Use
  Company Number: US-ROCHE-2598791

PATIENT
  Sex: Male

DRUGS (15)
  1. FISH OIL [Concomitant]
     Active Substance: FISH OIL
  2. CALCIUM [Concomitant]
     Active Substance: CALCIUM
  3. DOXYCYCLINE. [Concomitant]
     Active Substance: DOXYCYCLINE
  4. ISOSORBIDE. [Concomitant]
     Active Substance: ISOSORBIDE
  5. PEGASYS [Suspect]
     Active Substance: PEGINTERFERON ALFA-2A
     Indication: DIARRHOEA
     Route: 058
     Dates: start: 20200501
  6. ASPIRIN. [Concomitant]
     Active Substance: ASPIRIN
  7. FLOMAX CAPSULE [Concomitant]
  8. LISINOPRIL. [Concomitant]
     Active Substance: LISINOPRIL
  9. ATENOLOL. [Concomitant]
     Active Substance: ATENOLOL
  10. HYDROXYUREA. [Concomitant]
     Active Substance: HYDROXYUREA
  11. SPIRONOLACTONE. [Concomitant]
     Active Substance: SPIRONOLACTONE
  12. ZYRTEC [Concomitant]
     Active Substance: CETIRIZINE HYDROCHLORIDE
  13. BUMEX [Concomitant]
     Active Substance: BUMETANIDE
  14. DILANTIN [Concomitant]
     Active Substance: PHENYTOIN
  15. OMEPRAZOLE. [Concomitant]
     Active Substance: OMEPRAZOLE

REACTIONS (3)
  - Intentional product use issue [Unknown]
  - Off label use [Unknown]
  - Osteomyelitis [Unknown]
